FAERS Safety Report 5412394-9 (Version None)
Quarter: 2007Q3

REPORT INFORMATION
  Report Type: 
  Country: None (occurrence: None)
  Receive Date: 20070809
  Receipt Date: 20070726
  Transmission Date: 20080115
  Serious: Yes (Hospitalization)
  Sender: FDA-Public Use
  Company Number: 2007PV032896

PATIENT
  Age: 68 Year
  Sex: Female

DRUGS (8)
  1. SYMLIN [Suspect]
     Indication: TYPE 2 DIABETES MELLITUS
     Dosage: ; BID; SC, 15 MCG; BID; SC
     Route: 058
     Dates: end: 20070401
  2. SYMLIN [Suspect]
     Indication: TYPE 2 DIABETES MELLITUS
     Dosage: ; BID; SC, 15 MCG; BID; SC
     Route: 058
     Dates: start: 20061001
  3. LIPITOR [Suspect]
     Dosage: ; PO
     Route: 048
     Dates: end: 20070401
  4. TRICOR [Suspect]
     Dosage: ; PO
     Route: 048
     Dates: end: 20070401
  5. GLUCOPHAGE [Suspect]
     Dosage: ; PO
     Route: 048
     Dates: end: 20070401
  6. AVANDIA [Suspect]
     Dosage: ; PO
     Route: 048
     Dates: end: 20070401
  7. HUMULIN 70/30 [Suspect]
     Indication: TYPE 2 DIABETES MELLITUS
     Dosage: ; SC
     Route: 058
     Dates: end: 20070401
  8. VASOTEC [Suspect]
     Dates: end: 20070401

REACTIONS (8)
  - ALANINE AMINOTRANSFERASE INCREASED [None]
  - ASPARTATE AMINOTRANSFERASE INCREASED [None]
  - DRUG TOXICITY [None]
  - INFLUENZA LIKE ILLNESS [None]
  - MALAISE [None]
  - NAUSEA [None]
  - OVERDOSE [None]
  - WRONG DRUG ADMINISTERED [None]
